FAERS Safety Report 6629242-1 (Version None)
Quarter: 2010Q1

REPORT INFORMATION
  Report Type: 
  Country: None (occurrence: None)
  Receive Date: 20100311
  Receipt Date: 20090805
  Transmission Date: 20100710
  Serious: Yes (Hospitalization)
  Sender: FDA-Public Use
  Company Number: US-BIOGENIDEC-2009BI023766

PATIENT
  Age: 47 Year
  Sex: Female
  Weight: 74 kg

DRUGS (1)
  1. AVONEX [Suspect]
     Indication: MULTIPLE SCLEROSIS
     Route: 030
     Dates: start: 20090528, end: 20090718

REACTIONS (4)
  - CONVULSION [None]
  - DIZZINESS [None]
  - FALL [None]
  - INFLUENZA LIKE ILLNESS [None]
